FAERS Safety Report 10884410 (Version 1)
Quarter: 2015Q1

REPORT INFORMATION
  Report Type: Spontaneous
  Country: CH (occurrence: None)
  Receive Date: 20150227
  Receipt Date: 20150227
  Transmission Date: 20150721
  Serious: Yes (Other)
  Sender: FDA-Public Use
  Company Number: 20150103

PATIENT
  Age: 43 Year
  Sex: Female

DRUGS (2)
  1. FERINJECT [Suspect]
     Active Substance: FERRIC CARBOXYMALTOSE
     Indication: ANAEMIA
     Dates: start: 201412
  2. FERINJECT [Suspect]
     Active Substance: FERRIC CARBOXYMALTOSE
     Indication: ANAEMIA
     Dosage: 1000 MG, 1 IN 1 CYCLICAL
     Route: 041
     Dates: start: 20150126

REACTIONS (7)
  - Tachycardia [None]
  - Chills [None]
  - Headache [None]
  - Throat tightness [None]
  - Hyperhidrosis [None]
  - Hypertension [None]
  - Pyrexia [None]

NARRATIVE: CASE EVENT DATE: 20150126
